FAERS Safety Report 7852774-5 (Version None)
Quarter: 2011Q4

REPORT INFORMATION
  Report Type: 
  Country: None (occurrence: None)
  Receive Date: 20111026
  Receipt Date: 20111017
  Transmission Date: 20120403
  Serious: Yes (Other)
  Sender: FDA-Public Use
  Company Number: US-ASTRAZENECA-2011SE62674

PATIENT
  Sex: Female

DRUGS (11)
  1. CRESTOR [Suspect]
     Route: 048
     Dates: start: 20110811
  2. CRESTOR [Suspect]
     Route: 048
  3. TOPROL-XL [Suspect]
     Route: 048
     Dates: start: 20110101
  4. NEXIUM [Suspect]
     Indication: DYSPEPSIA
     Route: 048
     Dates: start: 20050101
  5. AMBIEN [Concomitant]
  6. CYMBALTA [Concomitant]
  7. TOPROL-XL [Suspect]
     Route: 048
     Dates: start: 20110811
  8. LOTRIL [Concomitant]
  9. PLAVIX [Concomitant]
  10. METFORMIN HCL [Concomitant]
  11. PLAQUENIL [Concomitant]

REACTIONS (6)
  - DRUG DOSE OMISSION [None]
  - MYOCARDIAL INFARCTION [None]
  - BLOOD PRESSURE DECREASED [None]
  - REGURGITATION [None]
  - ERUCTATION [None]
  - RASH PRURITIC [None]
